FAERS Safety Report 6306005-8 (Version None)
Quarter: 2009Q3

REPORT INFORMATION
  Report Type: 
  Country: None (occurrence: None)
  Receive Date: 20090812
  Receipt Date: 20090727
  Transmission Date: 20100115
  Serious: Yes (Hospitalization, Other)
  Sender: FDA-Public Use
  Company Number: US-PFIZER INC-2009231472

PATIENT
  Sex: Male

DRUGS (3)
  1. CORTISONE ACETATE [Suspect]
  2. SUNITINIB MALATE [Suspect]
  3. AMARYL [Concomitant]
     Dosage: UNK

REACTIONS (1)
  - BLOOD GLUCOSE INCREASED [None]
